FAERS Safety Report 25676836 (Version 1)
Quarter: 2025Q3

REPORT INFORMATION
  Report Type: Spontaneous
  Country: US (occurrence: None)
  Receive Date: 20250812
  Receipt Date: 20250812
  Transmission Date: 20251021
  Serious: Yes (Life-Threatening, Hospitalization, Disabling, Other)
  Sender: FDA-CTU
  Company Number: None

PATIENT
  Age: 45 Year
  Sex: Male
  Weight: 74.25 kg

DRUGS (4)
  1. DERMAKLEEN [Suspect]
     Active Substance: CHLOROXYLENOL
  2. DERMASARRA [Suspect]
     Active Substance: CAMPHOR (NATURAL)\MENTHOL
  3. KLEENFOAM [Suspect]
     Active Substance: CHLOROXYLENOL
  4. PERIGIENE [Suspect]
     Active Substance: CHLOROXYLENOL

REACTIONS (1)
  - Septic shock [None]

NARRATIVE: CASE EVENT DATE: 20250704
